FAERS Safety Report 20597404 (Version 1)
Quarter: 2022Q1

REPORT INFORMATION
  Report Type: Spontaneous
  Country: US (occurrence: None)
  Receive Date: 20220315
  Receipt Date: 20220315
  Transmission Date: 20220423
  Serious: Yes (Death)
  Sender: FDA-Public Use
  Company Number: None

PATIENT
  Age: 74 Year
  Sex: Female

DRUGS (1)
  1. LONSURF [Suspect]
     Active Substance: TIPIRACIL HYDROCHLORIDE\TRIFLURIDINE
     Indication: Neoplasm malignant
     Dosage: 3 TABLETS 3 .. DAILY ORAL
     Route: 048
     Dates: start: 20220206, end: 20220213

REACTIONS (1)
  - Death [None]

NARRATIVE: CASE EVENT DATE: 20220213
